FAERS Safety Report 8761100 (Version 1)
Quarter: 2012Q4

REPORT INFORMATION
  Report Type: 
  Country: CA (occurrence: CA)
  Receive Date: 20120830
  Receipt Date: 20120830
  Transmission Date: 20130627
  Serious: Yes (Hospitalization, Other)
  Sender: FDA-Public Use
  Company Number: CA-B.I. PHARMACEUTICALS,INC./RIDGEFIELD-2012-CN-01777CN

PATIENT
  Age: 65 Year
  Sex: Male

DRUGS (4)
  1. PRADAX [Suspect]
     Indication: ATRIAL FIBRILLATION
     Dosage: 300 mg
     Dates: start: 201201
  2. ASPIRIN [Concomitant]
  3. COVERSYL [Concomitant]
  4. CRESTOR [Concomitant]

REACTIONS (2)
  - Transient ischaemic attack [Recovered/Resolved]
  - Ischaemic stroke [Not Recovered/Not Resolved]
